FAERS Safety Report 14327038 (Version 2)
Quarter: 2018Q1

REPORT INFORMATION
  Report Type: Spontaneous
  Country: JP (occurrence: JP)
  Receive Date: 20171227
  Receipt Date: 20180221
  Transmission Date: 20180509
  Serious: Yes (Hospitalization, Other)
  Sender: FDA-Public Use
  Company Number: JP-009507513-1712JPN002268J

PATIENT
  Age: 72 Year
  Sex: Male
  Weight: 53 kg

DRUGS (3)
  1. KEYTRUDA [Suspect]
     Active Substance: PEMBROLIZUMAB
     Indication: LUNG ADENOCARCINOMA STAGE III
     Dosage: 200 MG, Q3W
     Route: 041
     Dates: start: 20171128, end: 20171128
  2. OLANZAPINE. [Suspect]
     Active Substance: OLANZAPINE
     Dosage: 2.5 MG, QD
     Route: 048
     Dates: start: 20171208, end: 20171214
  3. CODEINE PHOSPHATE HYDRATE [Suspect]
     Active Substance: CODEINE PHOSPHATE
     Dosage: 20 MG, TID
     Route: 048
     Dates: start: 20171204, end: 20171215

REACTIONS (10)
  - Haemoglobin decreased [Unknown]
  - Sneezing [Unknown]
  - Decreased appetite [Unknown]
  - Pleural effusion [Unknown]
  - Large intestinal obstruction [Recovered/Resolved]
  - Nausea [Unknown]
  - Pyrexia [Unknown]
  - Insomnia [Unknown]
  - Rhinorrhoea [Unknown]
  - Cough [Unknown]

NARRATIVE: CASE EVENT DATE: 20171129
